FAERS Safety Report 15350459 (Version 2)
Quarter: 2018Q4

REPORT INFORMATION
  Report Type: Report from Study
  Country: BR (occurrence: BR)
  Receive Date: 20180905
  Receipt Date: 20181108
  Transmission Date: 20190204
  Serious: Yes (Other)
  Sender: FDA-Public Use
  Company Number: BR-BIOGEN-2017BI00358738

PATIENT
  Age: 53 Year
  Sex: Female

DRUGS (2)
  1. TYSABRI [Suspect]
     Active Substance: NATALIZUMAB
     Indication: MULTIPLE SCLEROSIS
     Dosage: INFUSED OVER ONE HOUR
     Route: 042
     Dates: start: 20160412
  2. TYSABRI [Suspect]
     Active Substance: NATALIZUMAB
     Dosage: INFUSED OVER ONE HOUR
     Route: 042
     Dates: start: 201612

REACTIONS (13)
  - Ear infection [Unknown]
  - Upper respiratory tract infection [Unknown]
  - Diabetes mellitus [Unknown]
  - Uterine haemorrhage [Unknown]
  - Nutritional condition abnormal [Unknown]
  - Decreased immune responsiveness [Unknown]
  - Kidney infection [Unknown]
  - Nasopharyngitis [Unknown]
  - Cystitis [Unknown]
  - Asthenia [Unknown]
  - Anaemia [Unknown]
  - Weight decreased [Unknown]
  - Sinusitis [Unknown]

NARRATIVE: CASE EVENT DATE: 201802
